FAERS Safety Report 5267700-5 (Version None)
Quarter: 2007Q1

REPORT INFORMATION
  Report Type: 
  Country: None (occurrence: None)
  Receive Date: 20070316
  Receipt Date: 20070221
  Transmission Date: 20070707
  Serious: Yes (Hospitalization, Other)
  Sender: FDA-Public Use
  Company Number: US-PFIZER INC-2006140425

PATIENT
  Sex: Male
  Weight: 63.5 kg

DRUGS (1)
  1. BEXTRA [Suspect]
     Indication: MYALGIA
     Route: 048
     Dates: start: 20041018, end: 20050527

REACTIONS (8)
  - AMNESIA [None]
  - CARDIOVASCULAR DISORDER [None]
  - DEPRESSION [None]
  - HEADACHE [None]
  - HYPOAESTHESIA [None]
  - INJURY [None]
  - MYOCARDIAL INFARCTION [None]
  - PARAESTHESIA [None]
